FAERS Safety Report 10174616 (Version 1)
Quarter: 2014Q2

REPORT INFORMATION
  Report Type: Spontaneous
  Country: US (occurrence: US)
  Receive Date: 20140515
  Receipt Date: 20140515
  Transmission Date: 20141212
  Serious: Yes (Hospitalization)
  Sender: FDA-Public Use
  Company Number: US-GLAXOSMITHKLINE-A1072306A

PATIENT
  Age: 53 Year
  Sex: Female

DRUGS (9)
  1. LAMICTAL [Suspect]
     Indication: CONVULSION
     Dosage: 400MG TWICE PER DAY
     Route: 048
     Dates: start: 2009
  2. LAMOTRIGINE [Suspect]
     Indication: CONVULSION
     Dosage: 400MG TWICE PER DAY
     Route: 048
     Dates: start: 201312, end: 201312
  3. XANAX [Concomitant]
  4. EFFEXOR [Concomitant]
  5. LYSINE [Concomitant]
  6. PRAVASTATIN SODIUM [Concomitant]
  7. SEROQUEL [Concomitant]
  8. MOBIC [Concomitant]
  9. MAGNESIUM [Concomitant]

REACTIONS (9)
  - Skin graft [Recovering/Resolving]
  - Fall [Recovering/Resolving]
  - Surgery [Recovering/Resolving]
  - Head injury [Recovering/Resolving]
  - Head injury [Recovering/Resolving]
  - Laceration [Recovering/Resolving]
  - Eye injury [Recovering/Resolving]
  - Amnesia [Recovering/Resolving]
  - Drug ineffective [Unknown]
